FAERS Safety Report 5276172-6 (Version None)
Quarter: 2007Q1

REPORT INFORMATION
  Report Type: 
  Country: None (occurrence: None)
  Receive Date: 20070326
  Receipt Date: 20070315
  Transmission Date: 20070707
  Serious: Yes (Death)
  Sender: FDA-Public Use
  Company Number: SE-SANOFI-SYNTHELABO-A01200702804

PATIENT
  Sex: Male

DRUGS (3)
  1. BETOLVEX [Concomitant]
     Indication: DRUG USE FOR UNKNOWN INDICATION
     Dosage: UNK
     Route: 048
  2. XATRAL OD [Suspect]
     Indication: PROSTATISM
     Route: 048
     Dates: start: 20061128, end: 20061206
  3. ZOLOFT [Suspect]
     Indication: DEPRESSION
     Route: 048
     Dates: start: 20061128, end: 20061206

REACTIONS (1)
  - COMPLETED SUICIDE [None]
